FAERS Safety Report 12529412 (Version 2)
Quarter: 2016Q3

REPORT INFORMATION
  Report Type: Spontaneous
  Country: US (occurrence: US)
  Receive Date: 20160706
  Receipt Date: 20160901
  Transmission Date: 20161109
  Serious: Yes (Hospitalization)
  Sender: FDA-Public Use
  Company Number: US-RELYPSA-RLY2016001262

PATIENT
  Age: 71 Year
  Sex: Female

DRUGS (4)
  1. VELTASSA [Suspect]
     Active Substance: PATIROMER
     Indication: BLOOD POTASSIUM INCREASED
     Dosage: 8.4 G, QD
     Route: 048
     Dates: start: 20160527, end: 20160607
  2. ATENOLOL. [Concomitant]
     Active Substance: ATENOLOL
  3. LISINOPRIL                         /00894002/ [Suspect]
     Active Substance: LISINOPRIL
  4. LASIX [Suspect]
     Active Substance: FUROSEMIDE

REACTIONS (2)
  - Blood pressure decreased [Not Recovered/Not Resolved]
  - Dehydration [Recovered/Resolved]

NARRATIVE: CASE EVENT DATE: 20160531
